FAERS Safety Report 24031902 (Version 4)
Quarter: 2024Q3

REPORT INFORMATION
  Report Type: Spontaneous
  Country: GB (occurrence: GB)
  Receive Date: 20240629
  Receipt Date: 20240817
  Transmission Date: 20241016
  Serious: Yes (Other)
  Sender: BAXTER
  Company Number: GB-BAXTER-2024BAX020338

PATIENT
  Age: 34 Year
  Sex: Female
  Weight: 78 kg

DRUGS (12)
  1. CERNEVIT [Suspect]
     Active Substance: VITAMINS
     Indication: Parenteral nutrition
     Dosage: AT AN UNSPECIFIED DOSE ONCE A DAY
     Route: 042
     Dates: start: 20240412
  2. CERNEVIT [Suspect]
     Active Substance: VITAMINS
     Indication: Hyperemesis gravidarum
  3. SODIUM CHLORIDE [Suspect]
     Active Substance: SODIUM CHLORIDE
     Indication: Parenteral nutrition
     Dosage: AT AN UNSPECIFIED DOSE ONCE A DAY
     Route: 042
     Dates: start: 20240412
  4. SODIUM CHLORIDE [Suspect]
     Active Substance: SODIUM CHLORIDE
     Indication: Hyperemesis gravidarum
  5. ELECTROLYTES NOS [Suspect]
     Active Substance: ELECTROLYTES NOS
     Indication: Hyperemesis gravidarum
     Dosage: 1L ONCE A DAY
     Route: 042
  6. ELECTROLYTES NOS [Suspect]
     Active Substance: ELECTROLYTES NOS
     Indication: Parenteral nutrition
  7. IRON\MINERALS\POTASSIUM IOD\SODIUM FLUORIDE\SODIUM MOLYBDATE\SODIUM SE [Suspect]
     Active Substance: IRON\MINERALS\POTASSIUM IOD\SODIUM FLUORIDE\SODIUM MOLYBDATE\SODIUM SELENITE\ZINC
     Indication: Parenteral nutrition
     Dosage: (LABORATOIRE AGUETTANT, S.A.S.) AT AN UNSPECIFIED DOSE ONCE A DAY (DOSAGE FORM:CONCENTRATE FOR SOLUT
     Route: 042
     Dates: start: 20240412
  8. IRON\MINERALS\POTASSIUM IOD\SODIUM FLUORIDE\SODIUM MOLYBDATE\SODIUM SE [Suspect]
     Active Substance: IRON\MINERALS\POTASSIUM IOD\SODIUM FLUORIDE\SODIUM MOLYBDATE\SODIUM SELENITE\ZINC
     Indication: Hyperemesis gravidarum
  9. ASCORBIC ACID\VITAMIN B COMPLEX [Suspect]
     Active Substance: ASCORBIC ACID\VITAMIN B COMPLEX
     Indication: Refeeding syndrome
     Dosage: 1 PAIR ONCE A WEEK
     Route: 042
  10. ASCORBIC ACID\VITAMIN B COMPLEX [Suspect]
     Active Substance: ASCORBIC ACID\VITAMIN B COMPLEX
     Indication: Hyperemesis gravidarum
  11. ENOXAPARIN [Concomitant]
     Active Substance: ENOXAPARIN
     Indication: Dehydration
     Dosage: 40 MILLIGRAMS ONCE A DAY
     Route: 058
  12. ENOXAPARIN [Concomitant]
     Active Substance: ENOXAPARIN
     Dosage: 40 MILLIGRAMS ONCE A DAY
     Route: 065

REACTIONS (17)
  - Suicidal ideation [Unknown]
  - Dizziness [Unknown]
  - Disorientation [Unknown]
  - Muscle spasms [Unknown]
  - Headache [Unknown]
  - Aura [Unknown]
  - Tearfulness [Unknown]
  - Emotional distress [Unknown]
  - Depressed mood [Unknown]
  - Feeling of despair [Unknown]
  - Dissociation [Unknown]
  - Feeling guilty [Unknown]
  - Maternal exposure during pregnancy [Unknown]
  - Nausea [Unknown]
  - Diarrhoea [Recovering/Resolving]
  - Diarrhoea [Not Recovered/Not Resolved]
  - Rash [Unknown]

NARRATIVE: CASE EVENT DATE: 20240524
